FAERS Safety Report 5650444-5 (Version None)
Quarter: 2008Q1

REPORT INFORMATION
  Report Type: 
  Country: None (occurrence: None)
  Receive Date: 20080305
  Receipt Date: 20080228
  Transmission Date: 20080703
  Serious: Yes (Death)
  Sender: FDA-Public Use
  Company Number: DE-ELI_LILLY_AND_COMPANY-DE200709004034

PATIENT
  Sex: Male

DRUGS (9)
  1. ZYPREXA [Suspect]
     Dosage: 15 MG, DAILY (1/D)
     Dates: start: 20030301
  2. ZYPREXA [Suspect]
     Dosage: 5 MG, DAILY (1/D)
  3. ZYPREXA [Suspect]
     Dosage: 2.5 MG, DAILY (1/D)
     Dates: start: 20060901
  4. LORAZEPAM [Concomitant]
     Dosage: 4 MG, DAILY (1/D)
     Dates: start: 20030301
  5. LORAZEPAM [Concomitant]
     Dosage: 1 MG, AS NEEDED
     Dates: start: 20060501
  6. ZOLOFT [Concomitant]
     Dosage: 150 MG, DAILY (1/D)
     Dates: start: 20030501
  7. ZOLOFT [Concomitant]
     Dosage: 100 MG, DAILY (1/D)
  8. ZOLOFT [Concomitant]
     Dosage: 50 MG, DAILY (1/D)
     Dates: start: 20060501
  9. ZOLOFT [Concomitant]
     Dosage: 25 MG, UNK
     Dates: start: 20060901

REACTIONS (2)
  - COMPLETED SUICIDE [None]
  - PHOBIA OF EXAMS [None]
